FAERS Safety Report 21436642 (Version 2)
Quarter: 2022Q4

REPORT INFORMATION
  Report Type: Report from Study
  Country: US (occurrence: US)
  Receive Date: 20221010
  Receipt Date: 20221221
  Transmission Date: 20230112
  Serious: No
  Sender: FDA-Public Use
  Company Number: US-ABBVIE-4146214

PATIENT
  Sex: Female

DRUGS (2)
  1. DUOPA [Suspect]
     Active Substance: CARBIDOPA\LEVODOPA
     Indication: Product used for unknown indication
     Route: 050
     Dates: start: 20220908
  2. DUOPA [Suspect]
     Active Substance: CARBIDOPA\LEVODOPA

REACTIONS (3)
  - Dyskinesia [Unknown]
  - Device issue [Not Recovered/Not Resolved]
  - Tremor [Unknown]
